FAERS Safety Report 7620589-9 (Version None)
Quarter: 2011Q3

REPORT INFORMATION
  Report Type: 
  Country: None (occurrence: None)
  Receive Date: 20110719
  Receipt Date: 20110706
  Transmission Date: 20111222
  Serious: Yes (Other)
  Sender: FDA-Public Use
  Company Number: AU-ROCHE-788133

PATIENT
  Age: 31 Year
  Sex: Male

DRUGS (4)
  1. DOTHIEPIN HYDROCHLORIDE [Interacting]
     Route: 065
  2. DIAZEPAM [Suspect]
     Route: 065
  3. METHYLENEDIOXYMETHAMPHETAMINE [Interacting]
     Route: 065
  4. METHAMPHETAMINE [Interacting]
     Route: 065

REACTIONS (1)
  - DRUG INTERACTION [None]
